FAERS Safety Report 5599655-8 (Version None)
Quarter: 2008Q1

REPORT INFORMATION
  Report Type: 
  Country: None (occurrence: None)
  Receive Date: 20080123
  Receipt Date: 20080116
  Transmission Date: 20080703
  Serious: Yes (Death, Other)
  Sender: FDA-Public Use
  Company Number: US-JNJFOC-20070903114

PATIENT
  Sex: Male

DRUGS (12)
  1. REMICADE [Suspect]
     Dosage: 21ST INFUSION
     Route: 042
  2. REMICADE [Suspect]
     Dosage: 20TH INFUSION
     Route: 042
  3. REMICADE [Suspect]
     Indication: RHEUMATOID ARTHRITIS
     Route: 042
  4. ASPIRIN [Concomitant]
  5. CALCIUM GLUCONATE [Concomitant]
  6. MULTI-VITAMIN [Concomitant]
  7. DIFLUNISAL [Concomitant]
  8. FOLIC ACID [Concomitant]
  9. METHOTREXATE [Concomitant]
  10. BENICAR HCT [Concomitant]
  11. PREDNISONE TAB [Concomitant]
  12. ASCORBIC ACID [Concomitant]

REACTIONS (4)
  - BONE NEOPLASM MALIGNANT [None]
  - DEATH [None]
  - LUNG NEOPLASM MALIGNANT [None]
  - LYMPHOMA [None]
